APPROVED DRUG PRODUCT: BETAXOLOL HYDROCHLORIDE
Active Ingredient: BETAXOLOL HYDROCHLORIDE
Strength: 10MG
Dosage Form/Route: TABLET;ORAL
Application: A078962 | Product #001 | TE Code: AB
Applicant: KVK TECH INC
Approved: Jun 27, 2008 | RLD: No | RS: No | Type: RX